FAERS Safety Report 9927409 (Version 5)
Quarter: 2015Q1

REPORT INFORMATION
  Report Type: Report from Study
  Country: JP (occurrence: JP)
  Receive Date: 20140226
  Receipt Date: 20150227
  Transmission Date: 20150721
  Serious: Yes (Hospitalization)
  Sender: FDA-Public Use
  Company Number: PHHY2013JP092628

PATIENT
  Age: 41 Year
  Sex: Female
  Weight: 55 kg

DRUGS (19)
  1. LOXONIN [Concomitant]
     Active Substance: LOXOPROFEN SODIUM
     Indication: HEADACHE
     Dosage: 60 MG, PRN
     Route: 048
  2. PAXIL [Concomitant]
     Active Substance: PAROXETINE HYDROCHLORIDE
     Indication: PANIC DISORDER
     Dosage: 10 MG, UNK
     Route: 048
     Dates: start: 20130805, end: 20130821
  3. BIOFERMIN [Concomitant]
     Active Substance: BACILLUS SUBTILIS\LACTOBACILLUS ACIDOPHILUS\STREPTOCOCCUS FAECAIS
     Indication: GASTROENTERITIS
     Dosage: 1 G, QD
     Route: 048
  4. DOGMATYL [Concomitant]
     Active Substance: SULPIRIDE
     Indication: GASTROENTERITIS
     Dosage: 50 MG, QD
     Route: 048
     Dates: end: 20130804
  5. SOLDEM 3A [Concomitant]
     Active Substance: CARBOHYDRATES\POTASSIUM CHLORIDE\SODIUM CHLORIDE\SODIUM LACTATE
     Dosage: 200 ML, QD
     Route: 051
     Dates: start: 20140714, end: 20140716
  6. SOLU-MEDROL [Concomitant]
     Active Substance: METHYLPREDNISOLONE SODIUM SUCCINATE
     Indication: MULTIPLE SCLEROSIS
     Dosage: 500 MG, QD
     Route: 051
  7. GILENYA [Suspect]
     Active Substance: FINGOLIMOD HYDROCHLORIDE
     Dosage: 0.5 MG, QD
     Route: 048
     Dates: start: 20140903
  8. PARIET [Concomitant]
     Active Substance: RABEPRAZOLE SODIUM
     Indication: GASTROENTERITIS
     Dosage: 10 MG, QD
     Route: 048
  9. VITAMEDIN CAPSULE [Concomitant]
     Indication: HYPOVITAMINOSIS
     Dosage: 3 DF, QD
     Route: 048
  10. SOLU-MEDROL [Concomitant]
     Active Substance: METHYLPREDNISOLONE SODIUM SUCCINATE
     Dosage: 500 MG, QD
     Route: 051
     Dates: start: 20140714, end: 20140716
  11. GILENYA [Suspect]
     Active Substance: FINGOLIMOD HYDROCHLORIDE
     Dosage: 0.5 MG, QD
     Route: 048
     Dates: start: 20130415, end: 20130821
  12. GILENYA [Suspect]
     Active Substance: FINGOLIMOD HYDROCHLORIDE
     Dosage: 0.5 MG, QOD
     Route: 048
     Dates: start: 20130827
  13. SOLDEM 3A [Concomitant]
     Active Substance: CARBOHYDRATES\POTASSIUM CHLORIDE\SODIUM CHLORIDE\SODIUM LACTATE
     Indication: MULTIPLE SCLEROSIS
     Dosage: 200 ML, QD
     Route: 051
     Dates: start: 20140707, end: 20140709
  14. GILENYA [Suspect]
     Active Substance: FINGOLIMOD HYDROCHLORIDE
     Indication: MULTIPLE SCLEROSIS
     Dosage: 0.5 MG, QD
     Route: 065
     Dates: start: 20130213, end: 20130414
  15. DEPAS [Concomitant]
     Active Substance: ETIZOLAM
     Indication: PANIC DISORDER
     Dosage: 0.5 MG, QD
     Route: 048
  16. WASSER V [Concomitant]
     Indication: HYPOVITAMINOSIS
     Dosage: 1 G, QD
     Route: 048
     Dates: start: 20140718
  17. DOMPERIDONE [Concomitant]
     Active Substance: DOMPERIDONE
     Indication: GASTROENTERITIS
     Dosage: 10 MG, PRN
     Route: 048
  18. MYSLEE [Concomitant]
     Active Substance: ZOLPIDEM TARTRATE
     Indication: INSOMNIA
     Dosage: 5 MG, PRN
     Route: 048
  19. LAC B [Concomitant]
     Active Substance: BIFIDOBACTERIUM SPP.
     Indication: GASTROENTERITIS
     Dosage: 1 G, QD
     Route: 048
     Dates: start: 20141222

REACTIONS (5)
  - Dizziness [Recovered/Resolved]
  - Radial nerve palsy [Recovered/Resolved]
  - Nausea [Not Recovered/Not Resolved]
  - Herpes zoster [Recovered/Resolved]
  - Abdominal pain [Recovering/Resolving]

NARRATIVE: CASE EVENT DATE: 20130605
